FAERS Safety Report 6265985-X (Version None)
Quarter: 2009Q3

REPORT INFORMATION
  Report Type: 
  Country: None (occurrence: None)
  Receive Date: 20090713
  Receipt Date: 20090708
  Transmission Date: 20100115
  Serious: Yes (Other)
  Sender: FDA-Public Use
  Company Number: DK-ROCHE-642933

PATIENT
  Sex: Female

DRUGS (2)
  1. ROACCUTAN [Suspect]
     Indication: DRUG USE FOR UNKNOWN INDICATION
     Route: 065
     Dates: start: 19990101
  2. ROACCUTAN [Suspect]
     Route: 065
     Dates: end: 20000208

REACTIONS (1)
  - DEMYELINATION [None]
